FAERS Safety Report 14690658 (Version 1)
Quarter: 2018Q1

REPORT INFORMATION
  Report Type: Spontaneous
  Country: SE (occurrence: SE)
  Receive Date: 20180328
  Receipt Date: 20180328
  Transmission Date: 20180509
  Serious: Yes (Other)
  Sender: FDA-Public Use
  Company Number: SE-TEVA-2018-SE-872492

PATIENT
  Age: 43 Year
  Sex: Male
  Weight: 95 kg

DRUGS (8)
  1. NEBIDO [Concomitant]
     Active Substance: TESTOSTERONE UNDECANOATE
  2. IPREN [Concomitant]
     Active Substance: IBUPROFEN
  3. MAGNESIUM [Concomitant]
     Active Substance: MAGNESIUM
  4. TERBINAFINE ACTAVIS 250 MG TABLET [Suspect]
     Active Substance: TERBINAFINE
     Indication: ONYCHOMYCOSIS
     Route: 065
  5. IMOVANE [Concomitant]
     Active Substance: ZOPICLONE
  6. ALVEDON [Concomitant]
     Active Substance: ACETAMINOPHEN
  7. VITAMIN D [Concomitant]
     Active Substance: CHOLECALCIFEROL
  8. ZINC. [Concomitant]
     Active Substance: ZINC

REACTIONS (2)
  - Hypoacusis [Not Recovered/Not Resolved]
  - Tinnitus [Not Recovered/Not Resolved]
